FAERS Safety Report 7644108-6 (Version None)
Quarter: 2011Q3

REPORT INFORMATION
  Report Type: 
  Country: None (occurrence: None)
  Receive Date: 20110729
  Receipt Date: 20110722
  Transmission Date: 20111222
  Serious: Yes (Other)
  Sender: FDA-Public Use
  Company Number: IT-EISAI INC-E3810-04822-SPO-IT

PATIENT
  Age: 87 Year
  Sex: Female

DRUGS (5)
  1. SIMVASTATIN [Suspect]
     Dosage: UNKNOWN
     Route: 065
  2. RABEPRAZOLE SODIUM [Suspect]
     Dosage: UNKNOWN
     Route: 048
  3. COUMADIN [Suspect]
     Dosage: UNKNOWN
     Route: 065
  4. LEVOTHYROXINE SODIUM [Suspect]
     Dosage: UNKNOWN
     Route: 065
  5. LISINOPRIL [Suspect]
     Dosage: UNKNOWN
     Route: 065

REACTIONS (3)
  - SLUGGISHNESS [None]
  - INTENTIONAL SELF-INJURY [None]
  - BRADYCARDIA [None]
